FAERS Safety Report 16696756 (Version 1)
Quarter: 2019Q4

REPORT INFORMATION
  Report Type: Spontaneous
  Country: US (occurrence: US)
  Receive Date: 20190812
  Receipt Date: 20190812
  Transmission Date: 20200122
  Serious: No
  Sender: FDA-Public Use
  Company Number: None

PATIENT
  Sex: Female

DRUGS (2)
  1. AMITIPTYLINE [Suspect]
     Active Substance: AMITRIPTYLINE
  2. TOPAMAX [Suspect]
     Active Substance: TOPIRAMATE

REACTIONS (2)
  - Drug ineffective [None]
  - Somnolence [None]
